FAERS Safety Report 9944548 (Version 1)
Quarter: 2014Q1

REPORT INFORMATION
  Report Type: Report from Study
  Country: US (occurrence: US)
  Receive Date: 20140303
  Receipt Date: 20140303
  Transmission Date: 20141002
  Serious: No
  Sender: FDA-Public Use
  Company Number: US-ABBVIE-13P-163-1048679-00

PATIENT
  Age: 74 Year
  Sex: Female

DRUGS (2)
  1. HUMIRA [Suspect]
     Indication: CROHN^S DISEASE
     Dates: start: 20121023
  2. MANY HEART MEDICATIONS [Concomitant]
     Indication: CARDIAC DISORDER

REACTIONS (2)
  - Drug ineffective [Not Recovered/Not Resolved]
  - Gastric disorder [Not Recovered/Not Resolved]
